FAERS Safety Report 5709026-9 (Version None)
Quarter: 2008Q2

REPORT INFORMATION
  Report Type: 
  Country: None (occurrence: None)
  Receive Date: 20080416
  Receipt Date: 20080416
  Transmission Date: 20081010
  Serious: Yes (Other)
  Sender: FDA-Public Use
  Company Number: None

PATIENT
  Age: 33 Year
  Sex: Male
  Weight: 82.2 kg

DRUGS (1)
  1. DASATINIB 70 MG BRISTOL MYERS [Suspect]
     Indication: CHRONIC MYELOID LEUKAEMIA
     Dosage: 70 MG Q12H PO
     Route: 048
     Dates: start: 20080404, end: 20080407

REACTIONS (4)
  - COMPUTERISED TOMOGRAM ABNORMAL [None]
  - DYSPNOEA [None]
  - LUNG INFILTRATION [None]
  - PYREXIA [None]
